FAERS Safety Report 5227372-2 (Version None)
Quarter: 2007Q1

REPORT INFORMATION
  Report Type: 
  Country: None (occurrence: None)
  Receive Date: 20070202
  Receipt Date: 20070125
  Transmission Date: 20070707
  Serious: Yes (Hospitalization)
  Sender: FDA-Public Use
  Company Number: FR-AMGEN-UK196175

PATIENT
  Age: 74 Year
  Sex: Female

DRUGS (1)
  1. MIMPARA [Suspect]
     Indication: PRE-EXISTING DISEASE
     Route: 048
     Dates: start: 20060315, end: 20060914

REACTIONS (8)
  - ASTHENIA [None]
  - CONFUSIONAL STATE [None]
  - GENERAL PHYSICAL HEALTH DETERIORATION [None]
  - HYPERCALCAEMIA [None]
  - METABOLIC DISORDER [None]
  - MUSCULAR WEAKNESS [None]
  - PERSONALITY CHANGE DUE TO A GENERAL MEDICAL CONDITION [None]
  - TREMOR [None]
